FAERS Safety Report 13914485 (Version 1)
Quarter: 2017Q3

REPORT INFORMATION
  Report Type: Spontaneous
  Country: US (occurrence: US)
  Receive Date: 20170828
  Receipt Date: 20170828
  Transmission Date: 20171127
  Serious: No
  Sender: FDA-Public Use
  Company Number: US-ROCHE-1140872

PATIENT
  Sex: Male
  Weight: 26 kg

DRUGS (1)
  1. NUTROPIN AQ [Suspect]
     Active Substance: SOMATROPIN
     Indication: DWARFISM
     Dosage: 0.27 CC, 0.05 MG/KG
     Route: 058

REACTIONS (2)
  - Gynaecomastia [Unknown]
  - Growth retardation [Unknown]
